FAERS Safety Report 6324872-9 (Version None)
Quarter: 2009Q3

REPORT INFORMATION
  Report Type: 
  Country: None (occurrence: None)
  Receive Date: 20090824
  Receipt Date: 20090623
  Transmission Date: 20100115
  Serious: No
  Sender: FDA-Public Use
  Company Number: US-ABBOTT-09P-163-0581589-00

PATIENT
  Sex: Female
  Weight: 108.96 kg

DRUGS (12)
  1. NIASPAN [Suspect]
     Indication: BLOOD CHOLESTEROL INCREASED
     Dosage: AT BEDTIME
     Dates: start: 20090601, end: 20090601
  2. GLIPIZIDE [Concomitant]
     Indication: DRUG USE FOR UNKNOWN INDICATION
  3. ANTIVERT [Concomitant]
     Indication: DRUG USE FOR UNKNOWN INDICATION
  4. MIRAPEX [Concomitant]
     Indication: DRUG USE FOR UNKNOWN INDICATION
  5. JANUVIA [Concomitant]
     Indication: DRUG USE FOR UNKNOWN INDICATION
  6. METHOCARBAMOL [Concomitant]
     Indication: DRUG USE FOR UNKNOWN INDICATION
  7. LEVAZA [Concomitant]
     Indication: DRUG USE FOR UNKNOWN INDICATION
  8. WELCHOL [Concomitant]
     Indication: DRUG USE FOR UNKNOWN INDICATION
  9. TRICOR [Concomitant]
     Indication: DRUG USE FOR UNKNOWN INDICATION
  10. BENICAR [Concomitant]
     Indication: DRUG USE FOR UNKNOWN INDICATION
  11. MVT [Concomitant]
     Indication: DRUG USE FOR UNKNOWN INDICATION
  12. B3 [Concomitant]
     Indication: DRUG USE FOR UNKNOWN INDICATION
     Dosage: 20MG X 2 BID FOR 3 MONTHS

REACTIONS (1)
  - DYSPEPSIA [None]
